FAERS Safety Report 21635473 (Version 1)
Quarter: 2022Q4

REPORT INFORMATION
  Report Type: Spontaneous
  Country: US (occurrence: US)
  Receive Date: 20221123
  Receipt Date: 20221123
  Transmission Date: 20230113
  Serious: No
  Sender: FDA-Public Use
  Company Number: US-NOVOPROD-856249

PATIENT
  Sex: Female

DRUGS (3)
  1. NOVOLOG [Suspect]
     Active Substance: INSULIN ASPART
     Indication: Type 2 diabetes mellitus
     Dosage: 5 UNITS WITH MEALS
     Route: 058
     Dates: start: 1981
  2. LANTUS [Concomitant]
     Active Substance: INSULIN GLARGINE
     Dosage: NOW 15 UNITS
     Route: 058
  3. LANTUS [Concomitant]
     Active Substance: INSULIN GLARGINE
     Indication: Type 2 diabetes mellitus
     Dosage: 20 UNITS PREVIOUSLY
     Route: 058

REACTIONS (4)
  - Sinus disorder [Not Recovered/Not Resolved]
  - Hypoacusis [Unknown]
  - Blood glucose fluctuation [Recovered/Resolved]
  - Liquid product physical issue [Not Recovered/Not Resolved]

NARRATIVE: CASE EVENT DATE: 20200101
